FAERS Safety Report 7999237-4 (Version None)
Quarter: 2011Q4

REPORT INFORMATION
  Report Type: 
  Country: None (occurrence: None)
  Receive Date: 20111221
  Receipt Date: 20111215
  Transmission Date: 20120403
  Serious: Yes (Other)
  Sender: FDA-Public Use
  Company Number: US-US-EMD SERONO, INC.-7099960

PATIENT
  Sex: Male

DRUGS (9)
  1. NEURONTIN [Concomitant]
     Route: 048
     Dates: start: 20110316
  2. FLONASE [Concomitant]
  3. NEURONTIN [Concomitant]
     Indication: BURNING SENSATION
     Route: 048
     Dates: start: 20100224, end: 20100602
  4. REBIF [Suspect]
     Route: 058
     Dates: start: 20110518
  5. XANAX [Concomitant]
  6. REBIF [Suspect]
     Indication: RELAPSING-REMITTING MULTIPLE SCLEROSIS
     Dates: start: 20100224
  7. ACETAMINOPHEN [Concomitant]
     Indication: PREMEDICATION
  8. NEURONTIN [Concomitant]
     Route: 048
     Dates: start: 20101103, end: 20110316
  9. PRILOSEC [Concomitant]

REACTIONS (2)
  - HEADACHE [None]
  - NEPHROLITHIASIS [None]
